FAERS Safety Report 7207956-2 (Version None)
Quarter: 2011Q1

REPORT INFORMATION
  Report Type: 
  Country: None (occurrence: None)
  Receive Date: 20110104
  Receipt Date: 20101227
  Transmission Date: 20110831
  Serious: Yes (Other)
  Sender: FDA-Public Use
  Company Number: BR-PFIZER INC-2010159195

PATIENT
  Age: 62 Year
  Sex: Female

DRUGS (1)
  1. XALATAN [Suspect]
     Dosage: 3 UG, 1X/DAY
     Route: 047
     Dates: start: 20091207, end: 20100128

REACTIONS (3)
  - OEDEMA MOUTH [None]
  - EYE IRRITATION [None]
  - HYPERSENSITIVITY [None]
